FAERS Safety Report 6139157-3 (Version None)
Quarter: 2009Q2

REPORT INFORMATION
  Report Type: 
  Country: None (occurrence: None)
  Receive Date: 20090401
  Receipt Date: 20090319
  Transmission Date: 20091009
  Serious: Yes (Other)
  Sender: FDA-Public Use
  Company Number: US-PFIZER INC-2009190155

PATIENT
  Sex: Male

DRUGS (7)
  1. GEODON [Suspect]
     Indication: AGGRESSION
     Dosage: FREQUENCY: 3X/DAY, EVERY DAY;
     Route: 030
     Dates: start: 20010101, end: 20081001
  2. GEODON [Suspect]
     Indication: ABNORMAL BEHAVIOUR
  3. GEODON [Suspect]
     Indication: LIBIDO INCREASED
  4. LASIX [Concomitant]
     Dosage: UNK
  5. POTASSIUM [Concomitant]
     Dosage: UNK
  6. ZYPREXA [Concomitant]
  7. LUPRON [Concomitant]

REACTIONS (11)
  - ABNORMAL BEHAVIOUR [None]
  - AGGRESSION [None]
  - CARDIAC PACEMAKER INSERTION [None]
  - CONFUSIONAL STATE [None]
  - DEMENTIA [None]
  - FALL [None]
  - HAEMORRHAGE INTRACRANIAL [None]
  - HALLUCINATION [None]
  - LIBIDO INCREASED [None]
  - VISUAL ACUITY REDUCED [None]
  - WEIGHT DECREASED [None]
